FAERS Safety Report 16943939 (Version 4)
Quarter: 2020Q1

REPORT INFORMATION
  Report Type: Spontaneous
  Country: ES (occurrence: ES)
  Receive Date: 20191022
  Receipt Date: 20200109
  Transmission Date: 20200409
  Serious: Yes (Hospitalization)
  Sender: FDA-Public Use
  Company Number: ES-TEVA-2019-ES-1124148

PATIENT
  Age: 91 Year
  Sex: Female

DRUGS (8)
  1. CARDYL 40 MG COMPRIMIDOS RECUBIERTOS CON PELICULA [Concomitant]
  2. VIMPAT 50 MG COMPRIMIDOS RECUBIERTOS CON PELICULA [Concomitant]
  3. CANDESARTAN 4 MG COMPRIMIDO [Concomitant]
  4. QUETIAPINA (1136A) [Concomitant]
     Active Substance: QUETIAPINE
  5. CLOPIDOGREL [Suspect]
     Active Substance: CLOPIDOGREL BISULFATE
     Indication: MYOCARDIAL ISCHAEMIA
     Dosage: 75 MILLIGRAM DAILY; 0-1-0
     Route: 048
     Dates: start: 20150515, end: 20171213
  6. NITROPLAST 5 PARCHES TRANSDERMICOS [Concomitant]
  7. BISOPROLOL 2,5 MG COMPRIMIDO [Concomitant]
     Active Substance: BISOPROLOL
  8. NEXIUM MUPS 20 MG COMPRIMIDOS GASTRORRESISTENTES [Concomitant]

REACTIONS (1)
  - Cerebellar haemorrhage [Recovering/Resolving]

NARRATIVE: CASE EVENT DATE: 20171212
